FAERS Safety Report 8113546-X (Version None)
Quarter: 2012Q1

REPORT INFORMATION
  Report Type: 
  Country: None (occurrence: None)
  Receive Date: 20120203
  Receipt Date: 20120131
  Transmission Date: 20120608
  Serious: Yes (Death, Hospitalization)
  Sender: FDA-Public Use
  Company Number: PHHY2012KR008832

PATIENT
  Age: 73 Year
  Sex: Male

DRUGS (6)
  1. FLUOROURACIL [Concomitant]
     Indication: COLON CANCER
     Dosage: UNK UKN, UNK
     Dates: start: 20090901
  2. LEUCOVORIN CALCIUM [Concomitant]
     Indication: COLON CANCER
     Dosage: UNK UKN, UNK
     Dates: start: 20090901
  3. LEUCOVORIN CALCIUM [Concomitant]
     Indication: METASTASES TO LYMPH NODES
  4. OXALIPLATIN [Suspect]
     Indication: METASTASES TO LYMPH NODES
  5. FLUOROURACIL [Concomitant]
     Indication: METASTASES TO LYMPH NODES
  6. OXALIPLATIN [Suspect]
     Indication: COLON CANCER
     Dosage: 680 MG/M2
     Dates: start: 20090901

REACTIONS (7)
  - INTERSTITIAL LUNG DISEASE [None]
  - RALES [None]
  - PULMONARY FIBROSIS [None]
  - RESPIRATORY FAILURE [None]
  - BODY TEMPERATURE INCREASED [None]
  - LEUKOCYTOSIS [None]
  - DYSPNOEA EXERTIONAL [None]
